FAERS Safety Report 18456272 (Version 1)
Quarter: 2020Q4

REPORT INFORMATION
  Report Type: Other
  Country: UA (occurrence: UA)
  Receive Date: 20201103
  Receipt Date: 20201103
  Transmission Date: 20210114
  Serious: Yes (Death)
  Sender: FDA-Public Use
  Company Number: UA-ROCHE-2707634

PATIENT
  Sex: Male

DRUGS (1)
  1. AVASTIN [Suspect]
     Active Substance: BEVACIZUMAB
     Indication: ADENOCARCINOMA
     Route: 065

REACTIONS (3)
  - Death [Fatal]
  - Intentional product use issue [Fatal]
  - Off label use [Fatal]
